FAERS Safety Report 12860528 (Version 1)
Quarter: 2016Q4

REPORT INFORMATION
  Report Type: Report from Study
  Country: SE (occurrence: BD)
  Receive Date: 20161019
  Receipt Date: 20161019
  Transmission Date: 20170207
  Serious: Yes (Death, Other)
  Sender: FDA-Public Use
  Company Number: SE-CIPLA LTD.-2016BD19681

PATIENT

DRUGS (15)
  1. VITAMIN D [Suspect]
     Active Substance: CHOLECALCIFEROL
     Dosage: UNK
     Route: 064
  2. VITAMIN B12 [Suspect]
     Active Substance: CYANOCOBALAMIN
     Dosage: UNK
     Route: 064
  3. SELENIUM [Suspect]
     Active Substance: SELENIUM
     Dosage: UNK
     Route: 064
  4. IRON [Suspect]
     Active Substance: IRON
     Dosage: UNK
     Route: 064
  5. RE VITAMIN A [Suspect]
     Active Substance: VITAMIN A ACETATE
     Dosage: UNK
     Route: 064
  6. VITAMIN B2 [Suspect]
     Active Substance: RIBOFLAVIN
     Dosage: UNK
     Route: 064
  7. NIACIN. [Suspect]
     Active Substance: NIACIN
     Dosage: UNK
     Route: 064
  8. ZINC SULFATE [Suspect]
     Active Substance: ZINC SULFATE\ZINC SULFATE ANHYDROUS
     Dosage: UNK
     Route: 064
  9. IODINE. [Suspect]
     Active Substance: IODINE
     Dosage: UNK
     Route: 064
  10. FOLIC ACID. [Suspect]
     Active Substance: FOLIC ACID
     Dosage: UNK
     Route: 064
  11. COPPER SULPHATE [Suspect]
     Active Substance: CUPRIC SULFATE ANHYDROUS
     Dosage: UNK
     Route: 064
  12. VITAMIN C [Suspect]
     Active Substance: ASCORBIC ACID
     Dosage: UNK
     Route: 064
  13. VITAMIN E [Suspect]
     Active Substance: .ALPHA.-TOCOPHEROL
     Dosage: UNK
     Route: 064
  14. VITAMIN B1 [Suspect]
     Active Substance: THIAMINE HYDROCHLORIDE
     Dosage: UNK
     Route: 064
  15. VITAMIN B6 [Suspect]
     Active Substance: PYRIDOXINE HYDROCHLORIDE
     Dosage: UNK
     Route: 064

REACTIONS (2)
  - Death [Fatal]
  - Foetal exposure during pregnancy [Unknown]
